FAERS Safety Report 4561107-1 (Version None)
Quarter: 2005Q1

REPORT INFORMATION
  Report Type: 
  Country: None (occurrence: None)
  Receive Date: 20050121
  Receipt Date: 20050113
  Transmission Date: 20050727
  Serious: Yes (Hospitalization)
  Sender: FDA-Public Use
  Company Number: T05-USA-00206-01

PATIENT
  Age: 67 Year
  Sex: Male
  Weight: 71.6683 kg

DRUGS (5)
  1. MEMANTINE HCL [Suspect]
     Indication: DEMENTIA ALZHEIMER'S TYPE
     Dosage: 20 MG QD PO
     Route: 048
  2. MEMANTINE (OPEN LABEL, PHASE C) (MEMANTINE) [Suspect]
     Indication: DEMENTIA ALZHEIMER'S TYPE
     Dosage: 20 MG QD PO
     Route: 048
     Dates: start: 20030124
  3. MEMANTINE (OPEN LABEL, PHASE B) (MEMANTINE) [Suspect]
     Indication: DEMENTIA ALZHEIMER'S TYPE
     Dosage: 20 MG QD PO
     Route: 048
     Dates: start: 20020807, end: 20030124
  4. MEMANTINE (UNBLINDED, PHASE A) (MEMANTINE) [Suspect]
     Indication: DEMENTIA ALZHEIMER'S TYPE
     Dosage: 2 TABLET BID PO
     Route: 048
     Dates: start: 20020703, end: 20020806
  5. METRONIDAZOLE HCL [Concomitant]

REACTIONS (13)
  - ANXIETY [None]
  - BLOOD CHOLESTEROL INCREASED [None]
  - CHEST PAIN [None]
  - CHOLELITHIASIS [None]
  - COLITIS [None]
  - CORONARY ARTERY ATHEROSCLEROSIS [None]
  - CORONARY ARTERY OCCLUSION [None]
  - DEPRESSION [None]
  - DIVERTICULITIS [None]
  - HYPERTENSION [None]
  - INSOMNIA [None]
  - REFUSAL OF TREATMENT BY PATIENT [None]
  - VOMITING [None]
